FAERS Safety Report 4850619-9 (Version None)
Quarter: 2005Q4

REPORT INFORMATION
  Report Type: 
  Country: None (occurrence: None)
  Receive Date: 20051208
  Receipt Date: 20051122
  Transmission Date: 20060501
  Serious: Yes (Hospitalization)
  Sender: FDA-Public Use
  Company Number: DSA_27235_2005

PATIENT
  Age: 58 Year
  Sex: Male

DRUGS (1)
  1. RENIVACE [Suspect]
     Indication: HYPERTENSION
     Dosage: 5 MG Q DAY, PO
     Route: 048
     Dates: start: 20041001, end: 20050601

REACTIONS (1)
  - PRODUCTIVE COUGH [None]
